FAERS Safety Report 4609445-8 (Version None)
Quarter: 2005Q1

REPORT INFORMATION
  Report Type: 
  Country: None (occurrence: None)
  Receive Date: 20050314
  Receipt Date: 20050307
  Transmission Date: 20050727
  Serious: Yes (Hospitalization)
  Sender: FDA-Public Use
  Company Number: 2005SE00534

PATIENT
  Age: 84 Year
  Sex: Male

DRUGS (10)
  1. ROSUVASTATIN [Suspect]
     Indication: CARDIAC FAILURE
     Dosage: 10 MG DAILY PO
     Route: 048
     Dates: start: 20040512
  2. BEMECOR [Concomitant]
  3. ACETYLSALICYLIC ACID SRT [Concomitant]
  4. ENARENAL [Concomitant]
  5. SPIRONOL [Concomitant]
  6. HYGROTON [Concomitant]
  7. VIVACOR [Concomitant]
  8. PREDUCTAL [Concomitant]
  9. NOOTROPIL [Concomitant]
  10. METIZOL [Concomitant]

REACTIONS (2)
  - CARDIAC FAILURE [None]
  - CONDITION AGGRAVATED [None]
